FAERS Safety Report 4354355-7 (Version None)
Quarter: 2004Q2

REPORT INFORMATION
  Report Type: 
  Country: None (occurrence: None)
  Receive Date: 20040506
  Receipt Date: 20040428
  Transmission Date: 20050107
  Serious: Yes (Hospitalization)
  Sender: FDA-Public Use
  Company Number: US-MERCK-0404USA02431

PATIENT
  Age: 67 Year
  Sex: Female

DRUGS (3)
  1. ADVAIR DISKUS 100/50 [Concomitant]
     Route: 065
  2. SINGULAIR [Suspect]
     Route: 048
     Dates: end: 20040201
  3. PREDNISONE [Concomitant]
     Route: 065

REACTIONS (3)
  - ALLERGIC GRANULOMATOUS ANGIITIS [None]
  - PANCREATIC CARCINOMA [None]
  - SYNCOPE [None]
